FAERS Safety Report 4576166-X (Version None)
Quarter: 2005Q1

REPORT INFORMATION
  Report Type: 
  Country: None (occurrence: None)
  Receive Date: 20050204
  Receipt Date: 20050124
  Transmission Date: 20050727
  Serious: Yes (Hospitalization)
  Sender: FDA-Public Use
  Company Number: 2005019587

PATIENT
  Age: 69 Year
  Sex: Male
  Weight: 80 kg

DRUGS (14)
  1. SOLU-MEDROL [Suspect]
     Indication: NAUSEA
     Dosage: 60 MG (CYCLIC INTERVAL: EVERY
     Dates: start: 20041125
  2. ONDANSETRON HYDROCHLORIDE [Suspect]
     Indication: NAUSEA
     Dosage: 8 MG (CYCLIC INTERVAL: EVERY
     Dates: start: 20041125
  3. CISPLATIN [Suspect]
     Indication: LUNG CARCINOMA CELL TYPE UNSPECIFIED STAGE 0
     Dosage: 45 MG (CYCLIC INTERVAL: EVERY
     Dates: start: 20041125
  4. DOCETAXEL [Concomitant]
  5. HYZAAR [Concomitant]
  6. THEOPHYLLINE [Concomitant]
  7. BECLOMETHASONE DIPROPIONATE [Concomitant]
  8. SALBUTAMOL W/IPRATROPIUM [Concomitant]
  9. PRAVASTATIN [Concomitant]
  10. TRIMETAZIDINE HYDROCHLORIDE [Concomitant]
  11. LEVOCETIRIZINE DIHYDROCHLORIDE [Concomitant]
  12. GUETHURAL               (GUETHOL CARBONATE, UREA) [Concomitant]
  13. COLCHICINE [Concomitant]
  14. CLAVULIN                (AMOXICILLIN TRIHYDRATE, CLAVULANATE POTASSIUM [Concomitant]

REACTIONS (5)
  - DYSPNOEA [None]
  - PYREXIA [None]
  - RASH GENERALISED [None]
  - RASH MACULO-PAPULAR [None]
  - RASH PRURITIC [None]
